FAERS Safety Report 11750226 (Version 3)
Quarter: 2015Q4

REPORT INFORMATION
  Report Type: Spontaneous
  Country: US (occurrence: US)
  Receive Date: 20151118
  Receipt Date: 20151229
  Transmission Date: 20160304
  Serious: Yes (Other)
  Sender: FDA-Public Use
  Company Number: US-PFIZER INC-2015381928

PATIENT
  Age: 38 Year
  Sex: Male

DRUGS (1)
  1. GABAPENTIN. [Suspect]
     Active Substance: GABAPENTIN
     Indication: PAIN
     Dosage: 400 MG, 2X/DAY
     Route: 048
     Dates: start: 201208, end: 201302

REACTIONS (5)
  - Vision blurred [Unknown]
  - Loss of employment [Unknown]
  - Amnesia [Unknown]
  - Dysarthria [Unknown]
  - Drug ineffective [Unknown]
